FAERS Safety Report 19864767 (Version 4)
Quarter: 2022Q1

REPORT INFORMATION
  Report Type: Spontaneous
  Country: US (occurrence: US)
  Receive Date: 20210921
  Receipt Date: 20220309
  Transmission Date: 20220423
  Serious: Yes (Other)
  Sender: FDA-Public Use
  Company Number: US-PFIZER INC-202101196121

PATIENT
  Age: 75 Year
  Sex: Female

DRUGS (4)
  1. TIKOSYN [Suspect]
     Active Substance: DOFETILIDE
     Dosage: 250 UG
  2. DOFETILIDE [Suspect]
     Active Substance: DOFETILIDE
     Dosage: 250 UG
  3. DOFETILIDE [Suspect]
     Active Substance: DOFETILIDE
     Dosage: 250 UG, 2X/DAY
     Route: 048
  4. LEVOTHYROXINE SODIUM [Suspect]
     Active Substance: LEVOTHYROXINE SODIUM
     Dosage: 75 UG (1 TABLET MONDAY THROUGH SATURDAY AND NONE ON SUNDAY ORALLY IN THE MORNING ON EMPTY STOMACH)
     Route: 048

REACTIONS (9)
  - Aortic valve incompetence [Unknown]
  - Pulmonary hypertension [Unknown]
  - Cardiac failure congestive [Unknown]
  - Ischaemic cardiomyopathy [Unknown]
  - Atrial fibrillation [Unknown]
  - Left ventricular enlargement [Unknown]
  - Left ventricular dysfunction [Unknown]
  - Ejection fraction decreased [Unknown]
  - Aortic valve stenosis [Unknown]
